FAERS Safety Report 8091354-6 (Version None)
Quarter: 2012Q1

REPORT INFORMATION
  Report Type: 
  Country: None (occurrence: None)
  Receive Date: 20120130
  Receipt Date: 20120130
  Transmission Date: 20120608
  Serious: No
  Sender: FDA-Public Use
  Company Number: None

PATIENT
  Sex: Female

DRUGS (1)
  1. LUPRON DEPOT [Suspect]
     Dosage: 11.25 MG IM
     Route: 030
     Dates: start: 20111108

REACTIONS (4)
  - ARTHRALGIA [None]
  - NAUSEA [None]
  - MIGRAINE [None]
  - SENSORY LOSS [None]
